FAERS Safety Report 6153425-0 (Version None)
Quarter: 2009Q2

REPORT INFORMATION
  Report Type: 
  Country: None (occurrence: None)
  Receive Date: 20090409
  Receipt Date: 20090409
  Transmission Date: 20091009
  Serious: Yes (Other)
  Sender: FDA-Public Use
  Company Number: None

PATIENT
  Sex: Male
  Weight: 83.9154 kg

DRUGS (1)
  1. LYRICA [Suspect]
     Indication: ANALGESIA
     Dosage: 200 MG 4 TIMES A DAY PO ABOUT 3 YEARS
     Route: 048

REACTIONS (11)
  - AMNESIA [None]
  - APPARENT DEATH [None]
  - CHEST DISCOMFORT [None]
  - CONFUSIONAL STATE [None]
  - FEELING ABNORMAL [None]
  - HYPOAESTHESIA [None]
  - MUSCLE TWITCHING [None]
  - NAUSEA [None]
  - PANIC ATTACK [None]
  - THINKING ABNORMAL [None]
  - VOMITING [None]
